FAERS Safety Report 25331285 (Version 1)
Quarter: 2025Q2

REPORT INFORMATION
  Report Type: Spontaneous
  Country: GB (occurrence: GB)
  Receive Date: 20250519
  Receipt Date: 20250519
  Transmission Date: 20250717
  Serious: Yes (Other)
  Sender: REGENERON
  Company Number: GB-SA-2025SA141056

PATIENT
  Age: 32 Year
  Sex: Female

DRUGS (1)
  1. PRALUENT [Suspect]
     Active Substance: ALIROCUMAB
     Indication: Type IIa hyperlipidaemia
     Dosage: 150 MG, QOW, SOLUTION FOR INJECTION
     Route: 058
     Dates: start: 20241212

REACTIONS (2)
  - Autism spectrum disorder [Not Recovered/Not Resolved]
  - Injection site pain [Unknown]
